FAERS Safety Report 9849233 (Version 1)
Quarter: 2013Q4

REPORT INFORMATION
  Report Type: Spontaneous
  Country: US (occurrence: None)
  Receive Date: 20131223
  Receipt Date: 20131223
  Transmission Date: 20140711
  Serious: No
  Sender: FDA-Public Use
  Company Number: CABO-13003721

PATIENT
  Age: 57 Year
  Sex: Male

DRUGS (13)
  1. COMETRIQ [Suspect]
     Indication: RENAL CANCER
     Route: 048
     Dates: start: 20131014
  2. MOXIFLOXACIN (MOXIFLOXACIN) [Concomitant]
  3. SITAGLIPTIN (SITAGLIPTIN) [Concomitant]
  4. OXYCODONE (OXYCODONE HYDROCHLORIDE) [Concomitant]
  5. TRIAMCINOLONE (TRIAMCINOLONE ACETONIDE) [Concomitant]
  6. VITAMIN B12 (COBAMAMIDE) [Concomitant]
  7. POLYCARBOPHIL (POLYCARBOPHIL) [Concomitant]
  8. CALCIUM GLUCONATE (CALCIUM GLUCEPTATE, CALCIUM GLUCONATE) [Concomitant]
  9. MULTIVITAMIN (VITAMINS NOS) [Concomitant]
  10. ASCORBIC ACID (ASCORBIC ACID) [Concomitant]
  11. FENOFIBRATE (FENOFIBRATE) [Concomitant]
  12. ZYRTEC (CETIRIZINE HYDROCHLORIDE) [Concomitant]
  13. CITALOPRAM (CITALOPRAM HYDROCHLORIDE) [Concomitant]

REACTIONS (4)
  - Tremor [None]
  - Pyrexia [None]
  - Viral infection [None]
  - Off label use [None]
